FAERS Safety Report 6383723-7 (Version None)
Quarter: 2009Q3

REPORT INFORMATION
  Report Type: 
  Country: None (occurrence: None)
  Receive Date: 20090929
  Receipt Date: 20090929
  Transmission Date: 20100115
  Serious: Yes (Other)
  Sender: FDA-Public Use
  Company Number: None

PATIENT
  Age: 60 Year
  Sex: Male
  Weight: 86.1834 kg

DRUGS (1)
  1. CHANTIX [Suspect]

REACTIONS (5)
  - ANGER [None]
  - HOSTILITY [None]
  - MARITAL PROBLEM [None]
  - PARANOIA [None]
  - THINKING ABNORMAL [None]
